FAERS Safety Report 14371582 (Version 1)
Quarter: 2018Q1

REPORT INFORMATION
  Report Type: Other
  Country: FR (occurrence: FR)
  Receive Date: 20180110
  Receipt Date: 20180110
  Transmission Date: 20180509
  Serious: Yes (Life-Threatening)
  Sender: FDA-Public Use
  Company Number: FR-VALIDUS PHARMACEUTICALS LLC-FR-2018VAL000073

PATIENT
  Age: 70 Year
  Sex: Male

DRUGS (2)
  1. FUROSEMIDE. [Suspect]
     Active Substance: FUROSEMIDE
     Indication: DIAGNOSTIC PROCEDURE
     Dosage: UNK
     Route: 042
     Dates: start: 20170607, end: 20170607
  2. BLEU PATENTE V [Suspect]
     Active Substance: PATENT BLUE V
     Indication: DIAGNOSTIC PROCEDURE
     Dosage: UNK
     Route: 058
     Dates: start: 20170607, end: 20170607

REACTIONS (1)
  - Hypersensitivity [Recovered/Resolved]

NARRATIVE: CASE EVENT DATE: 20170607
